FAERS Safety Report 4552657-2 (Version None)
Quarter: 2005Q1

REPORT INFORMATION
  Report Type: 
  Country: None (occurrence: None)
  Receive Date: 20050112
  Receipt Date: 20050112
  Transmission Date: 20050727
  Serious: Yes (Life-Threatening)
  Sender: FDA-Public Use
  Company Number: None

PATIENT
  Age: 35 Year
  Sex: Male
  Weight: 71.6683 kg

DRUGS (2)
  1. ABACAVIR  600MG [Suspect]
     Indication: HIV INFECTION
     Dosage: 600MG  QD ORAL
     Route: 048
     Dates: start: 20041230, end: 20050109
  2. LAMIVUDINE [Suspect]
     Indication: HIV INFECTION
     Dosage: 300MG,  QD, ORAL
     Route: 048
     Dates: start: 20041230, end: 20050109

REACTIONS (12)
  - ARTHRALGIA [None]
  - CHILLS [None]
  - COUGH [None]
  - DRUG HYPERSENSITIVITY [None]
  - FATIGUE [None]
  - HEADACHE [None]
  - HERPES SIMPLEX [None]
  - MALAISE [None]
  - MYALGIA [None]
  - NAUSEA [None]
  - RASH [None]
  - TACHYCARDIA [None]
